FAERS Safety Report 5395713-1 (Version None)
Quarter: 2007Q3

REPORT INFORMATION
  Report Type: 
  Country: None (occurrence: None)
  Receive Date: 20070724
  Receipt Date: 20070712
  Transmission Date: 20080115
  Serious: Yes (Hospitalization)
  Sender: FDA-Public Use
  Company Number: JP-AMGEN-US192191

PATIENT
  Sex: Female

DRUGS (6)
  1. ENBREL [Suspect]
     Indication: RHEUMATOID ARTHRITIS
     Route: 058
     Dates: start: 20050418, end: 20060110
  2. ENBREL [Suspect]
     Route: 058
     Dates: start: 20060124, end: 20060714
  3. CYTOTEC [Concomitant]
     Route: 048
     Dates: start: 20041215
  4. SULFASALAZINE [Concomitant]
     Route: 048
     Dates: start: 20041215, end: 20050628
  5. SULFASALAZINE [Concomitant]
     Route: 048
     Dates: start: 20050629, end: 20050712
  6. LOXONIN [Concomitant]
     Indication: RHEUMATOID ARTHRITIS
     Route: 048
     Dates: start: 20041215

REACTIONS (1)
  - TUBERCULOUS PLEURISY [None]
